FAERS Safety Report 4985796-2 (Version None)
Quarter: 2006Q2

REPORT INFORMATION
  Report Type: 
  Country: None (occurrence: None)
  Receive Date: 20060428
  Receipt Date: 20050321
  Transmission Date: 20061013
  Serious: No
  Sender: FDA-Public Use
  Company Number: US-GLAXOSMITHKLINE-A0550616A

PATIENT
  Age: 54 Year
  Sex: Female

DRUGS (6)
  1. AMERGE [Suspect]
     Indication: MIGRAINE
     Dosage: 2.5MG AS REQUIRED
     Route: 048
     Dates: start: 20050201, end: 20050317
  2. TOPROL-XL [Concomitant]
  3. ASPIRIN [Concomitant]
  4. ISORDIL [Concomitant]
  5. LEVOXYL [Concomitant]
  6. THYROID TAB [Concomitant]
     Route: 048

REACTIONS (1)
  - DRUG INEFFECTIVE [None]
